FAERS Safety Report 7867453-8 (Version None)
Quarter: 2011Q4

REPORT INFORMATION
  Report Type: 
  Country: None (occurrence: None)
  Receive Date: 20111028
  Receipt Date: 20111014
  Transmission Date: 20120403
  Serious: Yes (Other)
  Sender: FDA-Public Use
  Company Number: NL-MEDIMMUNE-MEDI-0013668

PATIENT
  Sex: Female
  Weight: 5.14 kg

DRUGS (5)
  1. FERROFUMERAATDRANK [Concomitant]
  2. SYNAGIS [Suspect]
     Route: 030
     Dates: start: 20110928, end: 20110928
  3. NATRIUMCALCIUMGLUCONAATDRANK [Concomitant]
     Dates: start: 20110713
  4. SYNAGIS [Suspect]
     Route: 030
     Dates: start: 20110901, end: 20110901
  5. NATRIUMKALIUMFOSFAATDRANK [Concomitant]

REACTIONS (5)
  - HYPOPHAGIA [None]
  - RETCHING [None]
  - FEEDING DISORDER [None]
  - FLUID INTAKE REDUCED [None]
  - VOMITING [None]
